FAERS Safety Report 23437655 (Version 1)
Quarter: 2024Q1

REPORT INFORMATION
  Report Type: Spontaneous
  Country: US (occurrence: US)
  Receive Date: 20240124
  Receipt Date: 20240124
  Transmission Date: 20240409
  Serious: No
  Sender: FDA-Public Use
  Company Number: US-GSKCCFUS-Case-01907968_AE-106324

PATIENT
  Age: 94 Year
  Sex: Female

DRUGS (3)
  1. TRELEGY ELLIPTA [Suspect]
     Active Substance: FLUTICASONE FUROATE\UMECLIDINIUM BROMIDE\VILANTEROL TRIFENATATE
     Indication: Dyspnoea
     Dosage: 1 PUFF(S), QD 100/62.5/25 MCG
     Route: 055
     Dates: start: 20240112
  2. TORSEMIDE [Concomitant]
     Active Substance: TORSEMIDE
     Indication: Fluid retention
     Dosage: 20 MG, QD
  3. SPIRONOLACTONE [Concomitant]
     Active Substance: SPIRONOLACTONE
     Indication: Fluid retention
     Dosage: 25 MG, QD

REACTIONS (1)
  - Dysphonia [Not Recovered/Not Resolved]

NARRATIVE: CASE EVENT DATE: 20240112
